FAERS Safety Report 4968145-5 (Version None)
Quarter: 2006Q1

REPORT INFORMATION
  Report Type: 
  Country: None (occurrence: None)
  Receive Date: 20060201
  Receipt Date: 20051007
  Transmission Date: 20060701
  Serious: No
  Sender: FDA-Public Use
  Company Number: 2005PV002990

PATIENT
  Age: 69 Year
  Sex: Female
  Weight: 107.0489 kg

DRUGS (7)
  1. BYETTA [Suspect]
     Indication: DIABETES MELLITUS NON-INSULIN-DEPENDENT
     Dosage: SEE IMAGE, SC
     Route: 058
     Dates: start: 20050807, end: 20050905
  2. BYETTA [Suspect]
     Indication: DIABETES MELLITUS NON-INSULIN-DEPENDENT
     Dosage: SEE IMAGE, SC
     Route: 058
     Dates: start: 20050906, end: 20051001
  3. BYETTA [Suspect]
     Indication: DIABETES MELLITUS NON-INSULIN-DEPENDENT
     Dosage: SEE IMAGE, SC
     Route: 058
     Dates: start: 20051005
  4. METFORMIN [Concomitant]
  5. GLIPIZIDE [Concomitant]
  6. NPH INSULIN [Concomitant]
  7. HUMALOG [Concomitant]

REACTIONS (4)
  - DECREASED APPETITE [None]
  - DYSPEPSIA [None]
  - FEELING ABNORMAL [None]
  - WEIGHT DECREASED [None]
